FAERS Safety Report 20665799 (Version 1)
Quarter: 2022Q2

REPORT INFORMATION
  Report Type: Spontaneous
  Country: US (occurrence: US)
  Receive Date: 20220402
  Receipt Date: 20220402
  Transmission Date: 20220720
  Serious: Yes (Other)
  Sender: FDA-Public Use
  Company Number: US-TEVA-2022-US-2014894

PATIENT
  Age: 77 Year
  Sex: Female
  Weight: 45.81 kg

DRUGS (2)
  1. AUSTEDO [Suspect]
     Active Substance: DEUTETRABENAZINE
     Indication: Tardive dyskinesia
     Route: 065
     Dates: start: 2018
  2. AUSTEDO [Suspect]
     Active Substance: DEUTETRABENAZINE
     Dosage: TITRATED TO 24 MG OF AUSTEDO TWICE A DAY, DOWN TO 0 MG OF AUSTEDO TODAY (03MAR2022)
     Route: 065

REACTIONS (1)
  - Parkinsonism [Not Recovered/Not Resolved]

NARRATIVE: CASE EVENT DATE: 20210101
